FAERS Safety Report 5087868-3 (Version None)
Quarter: 2006Q3

REPORT INFORMATION
  Report Type: 
  Country: None (occurrence: None)
  Receive Date: 20060824
  Receipt Date: 20060815
  Transmission Date: 20061208
  Serious: Yes (Hospitalization)
  Sender: FDA-Public Use
  Company Number: JP-BRISTOL-MYERS SQUIBB COMPANY-13484803

PATIENT
  Age: 39 Year
  Sex: Male

DRUGS (8)
  1. EFAVIRENZ [Suspect]
     Indication: HIV INFECTION
     Route: 048
     Dates: start: 20060118
  2. EPZICOM [Suspect]
     Indication: HIV INFECTION
     Route: 048
     Dates: start: 20060118, end: 20060205
  3. VALIXA [Suspect]
     Indication: CYTOMEGALOVIRUS CHORIORETINITIS
     Route: 048
     Dates: start: 20060119, end: 20060201
  4. BACTRIM [Suspect]
     Indication: PROPHYLAXIS
     Route: 048
     Dates: start: 20060119, end: 20060203
  5. ZITHROMAC [Concomitant]
     Dates: start: 20060123
  6. ALLELOCK [Concomitant]
     Dates: start: 20060121
  7. DALACIN-T [Concomitant]
     Dates: start: 20051226
  8. SILECE [Concomitant]
     Dates: start: 20060107

REACTIONS (5)
  - ALANINE AMINOTRANSFERASE INCREASED [None]
  - ASPARTATE AMINOTRANSFERASE INCREASED [None]
  - LIVER DISORDER [None]
  - PYREXIA [None]
  - WHITE BLOOD CELL COUNT DECREASED [None]
